FAERS Safety Report 18054989 (Version 7)
Quarter: 2021Q3

REPORT INFORMATION
  Report Type: Report from Study
  Country: US (occurrence: US)
  Receive Date: 20200722
  Receipt Date: 20210907
  Transmission Date: 20211014
  Serious: Yes (Other)
  Sender: FDA-Public Use
  Company Number: US-B.I. PHARMACEUTICALS,INC./RIDGEFIELD-2020-MR-023541

PATIENT
  Age: 74 Year
  Sex: Female

DRUGS (2)
  1. OFEV [Suspect]
     Active Substance: NINTEDANIB
     Indication: IDIOPATHIC PULMONARY FIBROSIS
     Dosage: TAKE ONE 150 MG CAPSULE BY MOUTH EVERY 12 HOURS
     Route: 048
     Dates: start: 20200325
  2. OFEV [Suspect]
     Active Substance: NINTEDANIB
     Route: 048
     Dates: start: 20200914

REACTIONS (18)
  - Dry eye [Not Recovered/Not Resolved]
  - Asthenia [Not Recovered/Not Resolved]
  - Diarrhoea [Not Recovered/Not Resolved]
  - Glaucoma [Not Recovered/Not Resolved]
  - Epistaxis [Not Recovered/Not Resolved]
  - Nasal dryness [Not Recovered/Not Resolved]
  - Asthenia [Recovered/Resolved]
  - Vomiting [Not Recovered/Not Resolved]
  - Eye pain [Not Recovered/Not Resolved]
  - Malaise [Unknown]
  - Weight decreased [Not Recovered/Not Resolved]
  - Abdominal discomfort [Not Recovered/Not Resolved]
  - Decreased appetite [Not Recovered/Not Resolved]
  - Fatigue [Not Recovered/Not Resolved]
  - Headache [Not Recovered/Not Resolved]
  - Blood iron decreased [Not Recovered/Not Resolved]
  - Dizziness [Recovered/Resolved]
  - Eye pruritus [Not Recovered/Not Resolved]

NARRATIVE: CASE EVENT DATE: 2020
